FAERS Safety Report 22064149 (Version 1)
Quarter: 2023Q1

REPORT INFORMATION
  Report Type: Spontaneous
  Country: AU (occurrence: AU)
  Receive Date: 20230306
  Receipt Date: 20230306
  Transmission Date: 20230417
  Serious: Yes (Hospitalization)
  Sender: FDA-Public Use
  Company Number: AU-OTSUKA-2023_005337

PATIENT
  Age: 54 Year
  Sex: Male

DRUGS (5)
  1. ABILIFY [Suspect]
     Active Substance: ARIPIPRAZOLE
     Indication: Bipolar I disorder
     Dosage: UNK
     Route: 048
     Dates: start: 20221114
  2. ABILIFY [Suspect]
     Active Substance: ARIPIPRAZOLE
     Indication: Affective disorder
  3. ESCITALOPRAM [Concomitant]
     Active Substance: ESCITALOPRAM OXALATE
     Indication: Bipolar I disorder
     Dosage: UNK
     Route: 048
     Dates: start: 201808
  4. ESCITALOPRAM [Concomitant]
     Active Substance: ESCITALOPRAM OXALATE
     Indication: Antidepressant therapy
  5. XALATAN [Concomitant]
     Active Substance: LATANOPROST
     Indication: Glaucoma
     Dosage: UNK
     Route: 047
     Dates: start: 201109

REACTIONS (2)
  - Cholelithiasis [Recovering/Resolving]
  - Product use in unapproved indication [Unknown]

NARRATIVE: CASE EVENT DATE: 20221114
